FAERS Safety Report 23227919 (Version 2)
Quarter: 2023Q4

REPORT INFORMATION
  Report Type: Report from Study
  Country: EG (occurrence: EG)
  Receive Date: 20231125
  Receipt Date: 20231206
  Transmission Date: 20240110
  Serious: Yes (Life-Threatening, Hospitalization, Other)
  Sender: FDA-Public Use
  Company Number: EG-002147023-NVSC2023EG246509

PATIENT
  Age: 67 Year
  Sex: Male

DRUGS (6)
  1. ENTRESTO [Suspect]
     Active Substance: SACUBITRIL\VALSARTAN
     Indication: Left ventricular failure
     Dosage: 50 MG
     Route: 048
  2. ENTRESTO [Suspect]
     Active Substance: SACUBITRIL\VALSARTAN
     Dosage: 100 MG, BID
     Route: 048
  3. ENTRESTO [Suspect]
     Active Substance: SACUBITRIL\VALSARTAN
     Dosage: 50 MG, BID
     Route: 048
     Dates: start: 20230707
  4. ATOREZA [Concomitant]
     Indication: Cardiac disorder
     Dosage: 1 DOSAGE FORM (AFTER DINNER)
     Route: 048
     Dates: start: 20231115
  5. IVABRADINE HYDROCHLORIDE [Concomitant]
     Active Substance: IVABRADINE HYDROCHLORIDE
     Indication: Heart rate irregular
     Dosage: 1 DOSAGE FORM, BID
     Route: 048
     Dates: start: 20231115
  6. RYZODEG 70/30 [Concomitant]
     Active Substance: INSULIN ASPART\INSULIN DEGLUDEC
     Indication: Diabetes mellitus
     Dosage: UNK, QD
     Route: 065
     Dates: start: 20231115

REACTIONS (5)
  - Blood pressure fluctuation [Recovered/Resolved]
  - Cardiac failure [Unknown]
  - Heart rate increased [Unknown]
  - Product dispensing error [Not Recovered/Not Resolved]
  - Off label use [Recovered/Resolved]

NARRATIVE: CASE EVENT DATE: 20231101
